FAERS Safety Report 11398858 (Version 1)
Quarter: 2015Q3

REPORT INFORMATION
  Report Type: Spontaneous
  Country: DE (occurrence: DE)
  Receive Date: 20150820
  Receipt Date: 20150820
  Transmission Date: 20151125
  Serious: Yes (Hospitalization)
  Sender: FDA-Public Use
  Company Number: DE-JNJFOC-20150804380

PATIENT
  Age: 57 Year
  Sex: Male

DRUGS (12)
  1. CIPRAMIL [Interacting]
     Active Substance: CITALOPRAM HYDROBROMIDE
     Indication: SCHIZOAFFECTIVE DISORDER
     Route: 048
     Dates: start: 20041025, end: 20041115
  2. CIPRAMIL [Interacting]
     Active Substance: CITALOPRAM HYDROBROMIDE
     Indication: SCHIZOAFFECTIVE DISORDER
     Route: 048
     Dates: start: 20041018, end: 20041020
  3. ZELDOX [Concomitant]
     Active Substance: ZIPRASIDONE
     Indication: SCHIZOAFFECTIVE DISORDER
     Route: 048
     Dates: start: 20041112, end: 20041115
  4. RISPERDAL [Suspect]
     Active Substance: RISPERIDONE
     Indication: SCHIZOAFFECTIVE DISORDER
     Route: 048
     Dates: start: 20040929, end: 20041015
  5. TEGRETAL [Concomitant]
     Active Substance: CARBAMAZEPINE
     Indication: SCHIZOAFFECTIVE DISORDER
     Route: 065
     Dates: start: 20041116
  6. RISPERDAL [Suspect]
     Active Substance: RISPERIDONE
     Indication: SCHIZOAFFECTIVE DISORDER
     Route: 048
     Dates: start: 20041109, end: 20041115
  7. CIPRAMIL [Interacting]
     Active Substance: CITALOPRAM HYDROBROMIDE
     Indication: SCHIZOAFFECTIVE DISORDER
     Route: 048
     Dates: start: 20041021, end: 20041024
  8. RISPERDAL [Suspect]
     Active Substance: RISPERIDONE
     Indication: SCHIZOAFFECTIVE DISORDER
     Route: 048
     Dates: start: 20041016, end: 20041108
  9. CIPRAMIL [Interacting]
     Active Substance: CITALOPRAM HYDROBROMIDE
     Indication: SCHIZOAFFECTIVE DISORDER
     Route: 048
     Dates: start: 20041116
  10. ZELDOX [Concomitant]
     Active Substance: ZIPRASIDONE
     Indication: SCHIZOAFFECTIVE DISORDER
     Route: 048
  11. PLANUM [Concomitant]
     Active Substance: DESOGESTREL\ETHINYL ESTRADIOL
     Indication: SCHIZOAFFECTIVE DISORDER
     Route: 048
     Dates: start: 20040929
  12. TEGRETAL [Concomitant]
     Active Substance: CARBAMAZEPINE
     Indication: SCHIZOAFFECTIVE DISORDER
     Route: 065

REACTIONS (3)
  - Drug interaction [Recovered/Resolved]
  - Hyperhidrosis [Recovered/Resolved]
  - Mania [Unknown]

NARRATIVE: CASE EVENT DATE: 20041026
